FAERS Safety Report 7926604 (Version 2)
Quarter: 2012Q4

REPORT INFORMATION
  Report Type: 
  Country: US (occurrence: US)
  Receive Date: 20110502
  Receipt Date: 20121130
  Transmission Date: 20130627
  Serious: Yes (Other)
  Sender: FDA-Public Use
  Company Number: US-ASTRAZENECA-2011SE23500

PATIENT
  Age: 42 Year
  Sex: Female

DRUGS (2)
  1. TOPROL XL [Suspect]
     Route: 048
  2. NEXIUM [Suspect]
     Route: 048

REACTIONS (3)
  - Loss of consciousness [Unknown]
  - Neoplasm malignant [Unknown]
  - Drug dose omission [Unknown]
